FAERS Safety Report 25784926 (Version 1)
Quarter: 2025Q3

REPORT INFORMATION
  Report Type: Other
  Country: GB (occurrence: GB)
  Receive Date: 20250910
  Receipt Date: 20250910
  Transmission Date: 20251021
  Serious: Yes (Other)
  Sender: LUPIN
  Company Number: GB-LUPIN PHARMACEUTICALS INC.-2025-08177

PATIENT
  Age: 51 Year
  Sex: Female

DRUGS (3)
  1. SERTRALINE [Suspect]
     Active Substance: SERTRALINE HYDROCHLORIDE
     Indication: Product used for unknown indication
     Dosage: 100 MG, QD ( ONCE A DAY AT NIGHTTIME)
     Route: 065
  2. ESTRADIOL [Concomitant]
     Active Substance: ESTRADIOL
     Indication: Hormone replacement therapy
     Route: 065
  3. PROGESTERONE [Concomitant]
     Active Substance: PROGESTERONE
     Indication: Hormone replacement therapy
     Route: 065

REACTIONS (2)
  - Bruxism [Not Recovered/Not Resolved]
  - Trichotillomania [Not Recovered/Not Resolved]
